FAERS Safety Report 24659342 (Version 1)
Quarter: 2024Q4

REPORT INFORMATION
  Report Type: Spontaneous
  Country: US (occurrence: None)
  Receive Date: 20241123
  Receipt Date: 20241123
  Transmission Date: 20250115
  Serious: No
  Sender: Public
  Company Number: None

PATIENT
  Age: 64 Year
  Sex: Female
  Weight: 157.5 kg

DRUGS (11)
  1. METFORMIN HYDROCHLORIDE [Suspect]
     Active Substance: METFORMIN HYDROCHLORIDE
     Indication: Glycosylated haemoglobin increased
     Dosage: 1 500MG/5ML TWICE A DAY ORAL
     Route: 048
     Dates: start: 20241104, end: 20241119
  2. LOSARTAN [Concomitant]
  3. LASIX [Concomitant]
     Active Substance: FUROSEMIDE
  4. albuterol [Concomitant]
  5. NORETHINDRONE [Concomitant]
     Active Substance: NORETHINDRONE
  6. METFORMIN [Concomitant]
     Active Substance: METFORMIN HYDROCHLORIDE
  7. BREO ELLIPTA [Concomitant]
  8. multivitamin [Concomitant]
  9. COLLAGEN [Concomitant]
     Active Substance: COLLAGEN
  10. PROBIOTICS NOS [Concomitant]
     Active Substance: PROBIOTICS NOS
  11. METFORMIN [Suspect]
     Active Substance: METFORMIN HYDROCHLORIDE

REACTIONS (3)
  - Throat irritation [None]
  - Dysphonia [None]
  - Wrong technique in product usage process [None]

NARRATIVE: CASE EVENT DATE: 20241122
